FAERS Safety Report 16734265 (Version 14)
Quarter: 2021Q3

REPORT INFORMATION
  Report Type: Report from Study
  Country: CO (occurrence: CO)
  Receive Date: 20190823
  Receipt Date: 20210930
  Transmission Date: 20211014
  Serious: Yes (Other)
  Sender: FDA-Public Use
  Company Number: CO-SA-2019SA232599

PATIENT
  Age: 54 Year
  Sex: Male
  Weight: 91 kg

DRUGS (11)
  1. TAMSULOSIN HYDROCHLORIDE. [Suspect]
     Active Substance: TAMSULOSIN HYDROCHLORIDE
     Indication: PRODUCT USED FOR UNKNOWN INDICATION
     Dosage: 160 MG, QD
     Route: 065
  2. XTANDI [Suspect]
     Active Substance: ENZALUTAMIDE
     Dosage: 80 MG, QD
     Route: 048
     Dates: start: 201908
  3. ASA [Concomitant]
     Active Substance: ASPIRIN
     Route: 065
  4. COVID?19 VACCINE [Concomitant]
     Indication: COVID-19 PROPHYLAXIS
     Dosage: FIRST VACCINE
     Route: 065
     Dates: start: 20210526, end: 20210526
  5. DENOSUMAB [Concomitant]
     Active Substance: DENOSUMAB
     Dosage: UNK UNK, UNK
     Route: 065
  6. MELATONIN [Concomitant]
     Active Substance: MELATONIN
  7. XTANDI [Suspect]
     Active Substance: ENZALUTAMIDE
     Indication: HORMONE-REFRACTORY PROSTATE CANCER
     Dosage: 160 MG, QD
     Route: 048
     Dates: start: 20170606, end: 201906
  8. XTANDI [Suspect]
     Active Substance: ENZALUTAMIDE
     Dosage: 160 MG, QD
     Route: 048
     Dates: end: 201910
  9. XTANDI [Suspect]
     Active Substance: ENZALUTAMIDE
     Dosage: 160 MG, QD
     Route: 048
  10. ASA [Concomitant]
     Active Substance: ASPIRIN
  11. OMEPRAZOLE. [Concomitant]
     Active Substance: OMEPRAZOLE

REACTIONS (40)
  - Bradycardia [Unknown]
  - Pollakiuria [Not Recovered/Not Resolved]
  - Chest discomfort [Recovering/Resolving]
  - Back pain [Not Recovered/Not Resolved]
  - Chronic gastritis [Recovering/Resolving]
  - Congestive hepatopathy [Unknown]
  - Nocturia [Recovered/Resolved]
  - Anxiety [Not Recovered/Not Resolved]
  - Liver disorder [Not Recovered/Not Resolved]
  - Treatment noncompliance [Unknown]
  - Haemoglobin increased [Not Recovered/Not Resolved]
  - Blood triglycerides increased [Not Recovered/Not Resolved]
  - Erythema [Unknown]
  - Pancreatic disorder [Not Recovered/Not Resolved]
  - Urinary incontinence [Unknown]
  - Headache [Not Recovered/Not Resolved]
  - Micturition urgency [Not Recovered/Not Resolved]
  - Inappropriate schedule of product administration [Unknown]
  - Hyperhidrosis [Recovering/Resolving]
  - Osteoarthritis [Unknown]
  - Angina pectoris [Unknown]
  - Discomfort [Unknown]
  - Helicobacter infection [Recovered/Resolved]
  - Oropharyngeal discomfort [Not Recovered/Not Resolved]
  - Dizziness [Recovered/Resolved]
  - Headache [Recovered/Resolved]
  - Product dose omission issue [Unknown]
  - Headache [Not Recovered/Not Resolved]
  - Dyspnoea [Unknown]
  - Eructation [Unknown]
  - Helicobacter infection [Unknown]
  - Headache [Not Recovered/Not Resolved]
  - Insomnia [Not Recovered/Not Resolved]
  - Erythema [Not Recovered/Not Resolved]
  - Feeling hot [Not Recovered/Not Resolved]
  - Chest pain [Not Recovered/Not Resolved]
  - Eye irritation [Recovered/Resolved]
  - Swelling [Not Recovered/Not Resolved]
  - Heart rate decreased [Recovered/Resolved]
  - Gastrointestinal sounds abnormal [Not Recovered/Not Resolved]

NARRATIVE: CASE EVENT DATE: 201906
